FAERS Safety Report 8462544-5 (Version None)
Quarter: 2012Q2

REPORT INFORMATION
  Report Type: 
  Country: None (occurrence: None)
  Receive Date: 20120619
  Receipt Date: 20120619
  Transmission Date: 20120825
  Serious: Yes (Life-Threatening)
  Sender: FDA-Public Use
  Company Number: None

PATIENT

DRUGS (1)
  1. BANANA BOAT AEROSOL SPORTS SPRAY [Suspect]
     Dates: start: 20120528, end: 20120528

REACTIONS (3)
  - BURNS SECOND DEGREE [None]
  - BURNS FIRST DEGREE [None]
  - RIB FRACTURE [None]
